FAERS Safety Report 17822827 (Version 2)
Quarter: 2020Q2

REPORT INFORMATION
  Report Type: Spontaneous
  Country: US (occurrence: US)
  Receive Date: 20200526
  Receipt Date: 20200526
  Transmission Date: 20200714
  Serious: Yes (Other)
  Sender: FDA-Public Use
  Company Number: US-009507513-1908USA000216

PATIENT

DRUGS (2)
  1. REBETOL [Suspect]
     Active Substance: RIBAVIRIN
     Dosage: UNK
     Route: 048
  2. PEGINTRON [Suspect]
     Active Substance: PEGINTERFERON ALFA-2B
     Dosage: UNK

REACTIONS (27)
  - B-lymphocyte abnormalities [Unknown]
  - Cytomegalovirus infection [Unknown]
  - Dysgraphia [Unknown]
  - Fibromyalgia [Unknown]
  - Helicobacter infection [Unknown]
  - Nosocomial infection [Unknown]
  - Myalgia [Unknown]
  - Epstein-Barr virus infection [Unknown]
  - Pneumonia [Unknown]
  - White blood cell count decreased [Unknown]
  - Depression [Unknown]
  - Bronchitis [Unknown]
  - Intervertebral disc operation [Unknown]
  - Sjogren^s syndrome [Unknown]
  - Bone pain [Unknown]
  - Dementia [Unknown]
  - Pulmonary mass [Unknown]
  - Condition aggravated [Unknown]
  - Immunodeficiency common variable [Unknown]
  - Gait disturbance [Unknown]
  - Platelet count decreased [Unknown]
  - Bone density decreased [Unknown]
  - Nausea [Unknown]
  - Loss of libido [Unknown]
  - Herpes simplex [Unknown]
  - Thirst [Unknown]
  - Executive dysfunction [Unknown]

NARRATIVE: CASE EVENT DATE: 2011
